FAERS Safety Report 6810619-6 (Version None)
Quarter: 2010Q2

REPORT INFORMATION
  Report Type: 
  Country: None (occurrence: None)
  Receive Date: 20100625
  Receipt Date: 20100611
  Transmission Date: 20101027
  Serious: Yes (Other)
  Sender: FDA-Public Use
  Company Number: US-DEXPHARM-20100901

PATIENT
  Sex: Male
  Weight: 74.83 kg

DRUGS (3)
  1. OMEPRAZOLE [Suspect]
     Indication: GASTROOESOPHAGEAL REFLUX DISEASE
     Dosage: 20  MG ONCE A DAY, ORAL
     Route: 048
     Dates: start: 20100529, end: 20100611
  2. UNSPECIFIED STATIN [Concomitant]
  3. ZOMIG [Concomitant]

REACTIONS (7)
  - APHONIA [None]
  - BRADYCARDIA [None]
  - CONDITION AGGRAVATED [None]
  - DYSPHONIA [None]
  - HEADACHE [None]
  - LETHARGY [None]
  - NASOPHARYNGITIS [None]
